FAERS Safety Report 5536176-2 (Version None)
Quarter: 2007Q4

REPORT INFORMATION
  Report Type: 
  Country: None (occurrence: None)
  Receive Date: 20071206
  Receipt Date: 20071124
  Transmission Date: 20080405
  Serious: Yes (Other)
  Sender: FDA-Public Use
  Company Number: US-PFIZER INC-2007100839

PATIENT
  Age: 59 Year
  Sex: Female
  Weight: 52.272 kg

DRUGS (5)
  1. CHANTIX [Suspect]
     Indication: SMOKING CESSATION THERAPY
     Dates: start: 20071115, end: 20071123
  2. NORCO [Concomitant]
  3. NEURONTIN [Concomitant]
  4. TRAZODONE HCL [Concomitant]
  5. VITAMINS [Concomitant]

REACTIONS (4)
  - ABASIA [None]
  - ARTHRALGIA [None]
  - OEDEMA PERIPHERAL [None]
  - UNEVALUABLE EVENT [None]
